FAERS Safety Report 25878478 (Version 1)
Quarter: 2025Q4

REPORT INFORMATION
  Report Type: Spontaneous
  Country: CN (occurrence: CN)
  Receive Date: 20251003
  Receipt Date: 20251003
  Transmission Date: 20260117
  Serious: Yes (Hospitalization)
  Sender: GRIFOLS
  Company Number: CN-IGSA-BIG0038404

PATIENT
  Age: 54 Year
  Sex: Female
  Weight: 44 kg

DRUGS (5)
  1. ALBUTEIN [Suspect]
     Active Substance: ALBUMIN HUMAN
     Indication: Hypoproteinaemia
     Dosage: 12.5 GRAM, SINGLE
     Route: 041
     Dates: start: 20250830, end: 20250902
  2. CAMRELIZUMAB [Suspect]
     Active Substance: CAMRELIZUMAB
     Indication: Hepatic cancer
     Dosage: 200 MILLIGRAM, SINGLE
     Route: 041
     Dates: start: 20250721, end: 20250721
  3. RIVOCERANIB MESYLATE [Concomitant]
     Active Substance: RIVOCERANIB MESYLATE
     Dosage: 0.25 GRAM, QD
     Route: 048
     Dates: start: 20250721
  4. CARVEDILOL [Concomitant]
     Active Substance: CARVEDILOL
     Dosage: 5 MILLIGRAM, QD
     Route: 048
  5. LEUCOGEN [Concomitant]
     Active Substance: LEUCOGEN
     Dosage: 20 MILLIGRAM, TID
     Route: 048
     Dates: start: 20250831

REACTIONS (14)
  - Dermatitis bullous [Recovering/Resolving]
  - Toxic epidermal necrolysis [Recovering/Resolving]
  - Erythema [Recovering/Resolving]
  - Papule [Recovering/Resolving]
  - Blister [Recovering/Resolving]
  - Pruritus [Recovering/Resolving]
  - Skin lesion [Recovering/Resolving]
  - Conjunctival hyperaemia [Recovering/Resolving]
  - Ulcer [Recovering/Resolving]
  - Oral herpes [Recovering/Resolving]
  - Oropharyngeal erythema [Recovering/Resolving]
  - Palate injury [Recovering/Resolving]
  - Rash maculo-papular [Recovering/Resolving]
  - Herpes virus infection [Recovering/Resolving]

NARRATIVE: CASE EVENT DATE: 20250831
